FAERS Safety Report 24548725 (Version 7)
Quarter: 2025Q2

REPORT INFORMATION
  Report Type: Spontaneous
  Country: IN (occurrence: IN)
  Receive Date: 20241025
  Receipt Date: 20250602
  Transmission Date: 20250717
  Serious: Yes (Other)
  Sender: PFIZER
  Company Number: IN-PFIZER INC-PV202400081896

PATIENT
  Age: 48 Year
  Sex: Female
  Weight: 62.09 kg

DRUGS (14)
  1. LORLATINIB [Suspect]
     Active Substance: LORLATINIB
     Indication: Lung adenocarcinoma
     Dosage: 100 MG, 1X/DAY
     Route: 048
     Dates: start: 20240614, end: 20240617
  2. LORLATINIB [Suspect]
     Active Substance: LORLATINIB
     Route: 048
     Dates: start: 20240618
  3. LORLATINIB [Suspect]
     Active Substance: LORLATINIB
     Dosage: 50 MG, 1X/DAY (2 TABLETS OF 25MG EVERY DAY)
     Route: 048
  4. CLONAZEPAM [Concomitant]
     Active Substance: CLONAZEPAM
  5. SPIRONOLACTONE\TORSEMIDE [Concomitant]
     Active Substance: SPIRONOLACTONE\TORSEMIDE
  6. ESCITALOPRAM [Concomitant]
     Active Substance: ESCITALOPRAM OXALATE
  7. FENOFIBRATE [Concomitant]
     Active Substance: FENOFIBRATE
  8. METOPROLOL SUCCINATE [Concomitant]
     Active Substance: METOPROLOL SUCCINATE
  9. ROSUVASTATIN [Concomitant]
     Active Substance: ROSUVASTATIN
  10. THYROXINE [Concomitant]
     Active Substance: LEVOTHYROXINE
  11. BENZYDAMINE [Concomitant]
     Active Substance: BENZYDAMINE
     Indication: Mouth ulceration
  12. ASPIRIN [Concomitant]
     Active Substance: ASPIRIN
     Indication: Mouth ulceration
  13. LOPERAMIDE [Concomitant]
     Active Substance: LOPERAMIDE
     Indication: Diarrhoea
  14. REGLAN [Concomitant]
     Active Substance: METOCLOPRAMIDE HYDROCHLORIDE
     Indication: Vomiting

REACTIONS (37)
  - Electrocardiogram QT prolonged [Unknown]
  - Blood pressure increased [Not Recovered/Not Resolved]
  - Lung adenocarcinoma [Unknown]
  - Malignant neoplasm progression [Unknown]
  - Mixed anxiety and depressive disorder [Unknown]
  - Flatulence [Unknown]
  - Hyperchlorhydria [Unknown]
  - Abdominal distension [Unknown]
  - Tension [Unknown]
  - Body temperature decreased [Unknown]
  - Hyperhidrosis [Unknown]
  - Mood altered [Unknown]
  - Constipation [Unknown]
  - Asthenia [Unknown]
  - Fatigue [Unknown]
  - Anxiety [Unknown]
  - Stress [Unknown]
  - Depression [Unknown]
  - Weight increased [Unknown]
  - Hypoaesthesia [Unknown]
  - Paraesthesia [Unknown]
  - Aspartate aminotransferase increased [Recovering/Resolving]
  - Blood thyroid stimulating hormone increased [Unknown]
  - Blood sodium decreased [Unknown]
  - Mean platelet volume increased [Unknown]
  - Haemoglobin decreased [Not Recovered/Not Resolved]
  - Eosinophil percentage abnormal [Unknown]
  - Red blood cell count abnormal [Unknown]
  - Haematocrit decreased [Unknown]
  - Red cell distribution width increased [Unknown]
  - Uterine leiomyoma [Unknown]
  - Pain in extremity [Unknown]
  - Blood triglycerides increased [Recovering/Resolving]
  - Very low density lipoprotein increased [Unknown]
  - Blood glucose increased [Not Recovered/Not Resolved]
  - T-lymphocyte count increased [Unknown]
  - Pyrexia [Unknown]

NARRATIVE: CASE EVENT DATE: 20240601
